FAERS Safety Report 4305569-3 (Version None)
Quarter: 2004Q1

REPORT INFORMATION
  Report Type: 
  Country: None (occurrence: None)
  Receive Date: 20040226
  Receipt Date: 20031201
  Transmission Date: 20041129
  Serious: No
  Sender: FDA-Public Use
  Company Number: US-BRISTOL-MYERS SQUIBB COMPANY-12447892

PATIENT
  Age: 14 Year
  Sex: Male
  Weight: 58 kg

DRUGS (3)
  1. ABILIFY [Suspect]
     Indication: BIPOLAR DISORDER
     Route: 048
  2. STRATTERA [Concomitant]
  3. TRAZODONE HCL [Concomitant]

REACTIONS (3)
  - DYSKINESIA [None]
  - FEELING JITTERY [None]
  - INSOMNIA [None]
